FAERS Safety Report 7826538-2 (Version None)
Quarter: 2011Q4

REPORT INFORMATION
  Report Type: 
  Country: None (occurrence: None)
  Receive Date: 20111020
  Receipt Date: 20110711
  Transmission Date: 20120403
  Serious: No
  Sender: FDA-Public Use
  Company Number: US-MYLANLABS-2011S1014365

PATIENT
  Age: 76 Year
  Sex: Female

DRUGS (2)
  1. LOSARTAN POTASSIUM AND HYDROCHLOROTHIAZIDE [Suspect]
     Indication: HYPERTENSION
     Route: 048
     Dates: start: 20110710
  2. LOSARTAN POTASSIUM AND HYDROCHLOROTHIAZIDE [Suspect]
     Route: 048
     Dates: start: 20110710

REACTIONS (4)
  - NAUSEA [None]
  - FATIGUE [None]
  - HEADACHE [None]
  - BLOOD PRESSURE INCREASED [None]
